FAERS Safety Report 25562746 (Version 1)
Quarter: 2025Q3

REPORT INFORMATION
  Report Type: Spontaneous
  Country: US (occurrence: US)
  Receive Date: 20250716
  Receipt Date: 20250716
  Transmission Date: 20251020
  Serious: No
  Sender: NOVO NORDISK
  Company Number: US-NOVOPROD-1285626

PATIENT
  Sex: Female

DRUGS (1)
  1. OZEMPIC [Suspect]
     Active Substance: SEMAGLUTIDE
     Indication: Cardiac failure congestive
     Dosage: 1 MG, QW
     Route: 058

REACTIONS (4)
  - Influenza like illness [Recovered/Resolved]
  - Dyspepsia [Not Recovered/Not Resolved]
  - Eructation [Recovered/Resolved]
  - Product use in unapproved indication [Unknown]
